FAERS Safety Report 9864910 (Version 2)
Quarter: 2014Q1

REPORT INFORMATION
  Report Type: Report from Study
  Country: JP (occurrence: JP)
  Receive Date: 20140203
  Receipt Date: 20140319
  Transmission Date: 20141002
  Serious: Yes (Death, Hospitalization)
  Sender: FDA-Public Use
  Company Number: JP-ABBVIE-14P-087-1195824-00

PATIENT
  Age: 81 Year
  Sex: Female

DRUGS (8)
  1. HUMIRA [Suspect]
     Indication: RHEUMATOID ARTHRITIS
     Route: 058
     Dates: start: 20121204, end: 20130528
  2. PREDNISOLONE [Concomitant]
     Indication: RHEUMATOID ARTHRITIS
     Route: 048
     Dates: end: 20130608
  3. PREDNISOLONE [Concomitant]
     Route: 048
     Dates: start: 20120608, end: 20130508
  4. METHOTREXATE [Concomitant]
     Indication: RHEUMATOID ARTHRITIS
     Dates: start: 20121204, end: 20130508
  5. ETIZOLAM [Concomitant]
     Indication: PROPHYLAXIS
     Route: 048
  6. SENNOSIDE [Concomitant]
     Indication: PROPHYLAXIS
     Route: 048
  7. TICLOPIDINE HYDROCHLORIDE [Concomitant]
     Indication: PRODUCT USED FOR UNKNOWN INDICATION
     Route: 048
  8. MAGNESIUM OXIDE [Concomitant]
     Indication: PROPHYLAXIS
     Route: 048

REACTIONS (2)
  - Aortic aneurysm rupture [Fatal]
  - Back pain [Fatal]
